FAERS Safety Report 25366203 (Version 1)
Quarter: 2025Q2

REPORT INFORMATION
  Report Type: Report from Study
  Country: IT (occurrence: IT)
  Receive Date: 20250528
  Receipt Date: 20250528
  Transmission Date: 20250717
  Serious: Yes (Death, Other)
  Sender: ROCHE
  Company Number: IT-ROCHE-10000288669

PATIENT

DRUGS (7)
  1. RITUXIMAB [Suspect]
     Active Substance: RITUXIMAB
     Indication: Haematological malignancy
     Route: 065
  2. OBINUTUZUMAB [Suspect]
     Active Substance: OBINUTUZUMAB
     Indication: Haematological malignancy
     Route: 065
  3. VENETOCLAX [Suspect]
     Active Substance: VENETOCLAX
     Indication: Haematological malignancy
     Route: 065
  4. DARATUMUMAB [Suspect]
     Active Substance: DARATUMUMAB
     Indication: Haematological malignancy
     Route: 065
  5. IMATINIB [Suspect]
     Active Substance: IMATINIB
     Indication: Haematological malignancy
     Route: 065
  6. IBRUTINIB [Suspect]
     Active Substance: IBRUTINIB
     Indication: Haematological malignancy
     Route: 065
  7. RUXOLITINIB [Suspect]
     Active Substance: RUXOLITINIB
     Indication: Haematological malignancy
     Route: 065

REACTIONS (20)
  - Haematological infection [Fatal]
  - Respiratory tract infection [Fatal]
  - Pneumonia [Fatal]
  - COVID-19 [Fatal]
  - Bronchopulmonary aspergillosis [Fatal]
  - Skin infection [Unknown]
  - Mastoiditis [Unknown]
  - Staphylococcal infection [Unknown]
  - Mucormycosis [Unknown]
  - Escherichia infection [Unknown]
  - Klebsiella infection [Unknown]
  - Acinetobacter infection [Unknown]
  - Staphylococcal infection [Unknown]
  - Enterococcal infection [Unknown]
  - Enterobacter infection [Unknown]
  - Proteus infection [Unknown]
  - Pseudomonas infection [Unknown]
  - Cytomegalovirus infection reactivation [Fatal]
  - Urinary tract infection [Fatal]
  - Abdominal infection [Fatal]
